FAERS Safety Report 6442757-4 (Version None)
Quarter: 2009Q4

REPORT INFORMATION
  Report Type: 
  Country: None (occurrence: None)
  Receive Date: 20091117
  Receipt Date: 20091104
  Transmission Date: 20100525
  Serious: Yes (Other)
  Sender: FDA-Public Use
  Company Number: PHHY2009CA17017

PATIENT

DRUGS (3)
  1. CO-DIOVAN T32564+ [Suspect]
     Indication: HYPERTENSION
     Dosage: 160/25 MG
  2. DIOVAN [Suspect]
     Indication: HYPERTENSION
     Dosage: 160 MG EVERY DAY
  3. CALCIUM CHANNEL BLOCKERS [Concomitant]

REACTIONS (3)
  - BLOOD PRESSURE INADEQUATELY CONTROLLED [None]
  - BLOOD PRESSURE INCREASED [None]
  - DRUG INEFFECTIVE [None]
